FAERS Safety Report 23887328 (Version 1)
Quarter: 2024Q2

REPORT INFORMATION
  Report Type: Spontaneous
  Country: IT (occurrence: IT)
  Receive Date: 20240523
  Receipt Date: 20240523
  Transmission Date: 20240716
  Serious: Yes (Hospitalization, Other)
  Sender: FDA-Public Use
  Company Number: IT-MINISAL02-984525

PATIENT
  Age: 62 Year
  Sex: Female

DRUGS (4)
  1. ALPRAZOLAM [Suspect]
     Active Substance: ALPRAZOLAM
     Indication: Product used for unknown indication
     Dosage: TAKING 2 BOTTLES OF DROPS FOR SELF-HARMING PURPOSES(ASSUNZIONE A SCOPO AUTOLESIVO DI 2 FLACONI DI GO
     Route: 048
     Dates: start: 20240503
  2. QUETIAPINE [Suspect]
     Active Substance: QUETIAPINE
     Indication: Product used for unknown indication
     Dosage: TAKING 30 TABLETS OF 50 MG FOR SELF-HARMING PURPOSES(ASSUNZIONE A SCOPO AUTOLESIVO DI 30 CP DA 50 MG
     Route: 048
     Dates: start: 20240503
  3. CIPRALEX [Suspect]
     Active Substance: ESCITALOPRAM OXALATE
     Indication: Intentional self-injury
     Dosage: TAKING 28 TABLETS OF 20 MG FOR SELF-HARMING PURPOSES(ASSUNZIONE A SCOPO AUTOLESIVO DI 28 CP DA 20 MG
     Route: 048
     Dates: start: 20240503
  4. TRIFLUOPERAZINE HYDROCHLORIDE [Suspect]
     Active Substance: TRIFLUOPERAZINE HYDROCHLORIDE
     Indication: Intentional self-injury
     Dosage: TAKING 60 TABLETS OF UNSPECIFIED DOSAGE FOR SELF-HARMING PURPOSES (ASSUNZIONE A SCOPO AUTOLESIVO DI
     Route: 048
     Dates: start: 20240503

REACTIONS (5)
  - Coma [Recovered/Resolved]
  - Loss of consciousness [Recovered/Resolved]
  - Intentional self-injury [Unknown]
  - Sinus tachycardia [Recovered/Resolved]
  - Drug abuse [Unknown]

NARRATIVE: CASE EVENT DATE: 20240503
